FAERS Safety Report 6998095-4 (Version None)
Quarter: 2010Q3

REPORT INFORMATION
  Report Type: 
  Country: None (occurrence: None)
  Receive Date: 20100920
  Receipt Date: 20100217
  Transmission Date: 20110219
  Serious: Yes (Other)
  Sender: FDA-Public Use
  Company Number: US-ASTRAZENECA-2008UW27601

PATIENT
  Sex: Female

DRUGS (10)
  1. SEROQUEL [Suspect]
     Dosage: 25 TO 300 MG
     Route: 048
     Dates: start: 20000919
  2. NORVASC [Concomitant]
     Dates: start: 20000919
  3. CLONAZEPAM [Concomitant]
     Dates: start: 20000919
  4. CAPTOPRIL [Concomitant]
     Dates: start: 20000919
  5. SERZONE [Concomitant]
     Dosage: 200 TO 250 MG
     Dates: start: 20000919
  6. FUROSEMIDE [Concomitant]
     Dosage: 20 TO 40 MG
     Dates: start: 20001024
  7. ACTOPLUS MET [Concomitant]
     Dosage: 15 MG/500 MG
     Dates: start: 20061102
  8. LEXAPRO [Concomitant]
     Dates: start: 20061201
  9. AMBIEN CR [Concomitant]
     Dates: start: 20061201
  10. LISINOPRIL [Concomitant]
     Dates: start: 20070215

REACTIONS (3)
  - DIABETES MELLITUS [None]
  - KETOACIDOSIS [None]
  - PANCREATITIS [None]
